FAERS Safety Report 10034101 (Version 1)
Quarter: 2014Q1

REPORT INFORMATION
  Report Type: Spontaneous
  Country: US (occurrence: US)
  Receive Date: 20140325
  Receipt Date: 20140325
  Transmission Date: 20141002
  Serious: Yes (Other)
  Sender: FDA-Public Use
  Company Number: US-TEVA-470387USA

PATIENT
  Sex: Female

DRUGS (1)
  1. TAMOXIFEN [Suspect]
     Dosage: 10 MILLIGRAM DAILY;
     Dates: start: 20140224

REACTIONS (2)
  - Coeliac disease [Unknown]
  - Diarrhoea [Unknown]
